FAERS Safety Report 9323789 (Version 2)
Quarter: 2014Q1

REPORT INFORMATION
  Report Type: Spontaneous
  Country: FR (occurrence: FR)
  Receive Date: 20130603
  Receipt Date: 20140321
  Transmission Date: 20141002
  Serious: Yes (Hospitalization)
  Sender: FDA-Public Use
  Company Number: FR-JNJFOC-20130515831

PATIENT
  Age: 67 Year
  Sex: Male

DRUGS (2)
  1. REMICADE [Suspect]
     Indication: COLITIS ULCERATIVE
     Route: 042
     Dates: start: 201104
  2. CORTICOSTEROID NOS [Suspect]
     Indication: COLITIS ULCERATIVE
     Route: 065

REACTIONS (3)
  - Salmonellosis [Recovering/Resolving]
  - Aortic aneurysm [Recovering/Resolving]
  - Pyelonephritis [Recovering/Resolving]
